FAERS Safety Report 9086868 (Version 1)
Quarter: 2013Q1

REPORT INFORMATION
  Report Type: Report from Study
  Country: US (occurrence: US)
  Receive Date: 20130201
  Receipt Date: 20130201
  Transmission Date: 20140127
  Serious: No
  Sender: FDA-Public Use
  Company Number: US-ABBOTT-12P-163-1027870-00

PATIENT
  Age: 59 Year
  Sex: Male

DRUGS (5)
  1. HUMIRA [Suspect]
     Indication: ANKYLOSING SPONDYLITIS
     Dates: start: 20121114
  2. LEXAPRO [Concomitant]
     Indication: DEPRESSION
     Dosage: 10 MG DAILY
  3. TRAZADONE [Concomitant]
     Indication: INSOMNIA
     Dosage: 25 MG 1 AT BEDTIME
  4. VITAMIN D [Concomitant]
     Indication: PRODUCT USED FOR UNKNOWN INDICATION
     Dosage: WEEKLY
  5. ZITHROMYCIN [Concomitant]
     Indication: PRODUCT USED FOR UNKNOWN INDICATION

REACTIONS (2)
  - Productive cough [Recovered/Resolved]
  - Rhinorrhoea [Recovered/Resolved]
